FAERS Safety Report 23370986 (Version 1)
Quarter: 2024Q1

REPORT INFORMATION
  Report Type: Report from Study
  Country: US (occurrence: US)
  Receive Date: 20240105
  Receipt Date: 20240105
  Transmission Date: 20240410
  Serious: No
  Sender: FDA-Public Use
  Company Number: US-ALXN-202312USA001526US

PATIENT

DRUGS (1)
  1. STRENSIQ [Suspect]
     Active Substance: ASFOTASE ALFA
     Indication: Product used for unknown indication
     Dosage: UNK
     Route: 065

REACTIONS (19)
  - Bone density decreased [Unknown]
  - Gait disturbance [Unknown]
  - Fall [Unknown]
  - Body height decreased [Unknown]
  - Fibromyalgia [Unknown]
  - Arthritis [Unknown]
  - Back pain [Unknown]
  - Arthralgia [Unknown]
  - Pain in jaw [Unknown]
  - Pain [Unknown]
  - Musculoskeletal stiffness [Unknown]
  - Disturbance in attention [Unknown]
  - Coordination abnormal [Unknown]
  - Blood sodium decreased [Unknown]
  - Blood chloride decreased [Unknown]
  - Vitamin B6 decreased [Unknown]
  - Vitamin D increased [Unknown]
  - Headache [Unknown]
  - Myalgia [Unknown]

NARRATIVE: CASE EVENT DATE: 20231101
